FAERS Safety Report 7198226 (Version 5)
Quarter: 2015Q4

REPORT INFORMATION
  Report Type: Spontaneous
  Country: US (occurrence: US)
  Receive Date: 20091203
  Receipt Date: 20151117
  Transmission Date: 20160305
  Serious: Yes (Hospitalization, Other)
  Sender: FDA-Public Use
  Company Number: US-ELI_LILLY_AND_COMPANY-US200911006429

PATIENT
  Age: 72 Year
  Sex: Female

DRUGS (16)
  1. LORAZEPAM. [Concomitant]
     Active Substance: LORAZEPAM
     Dosage: 1.5 MG, QD
     Route: 065
  2. VYTORIN [Concomitant]
     Active Substance: EZETIMIBE\SIMVASTATIN
     Indication: BLOOD CHOLESTEROL INCREASED
     Dosage: 10 MG, QD
     Route: 065
  3. AMBIEN [Concomitant]
     Active Substance: ZOLPIDEM TARTRATE
     Dosage: 5 MG, UNKNOWN
     Route: 065
  4. VITAMIN D2 [Concomitant]
     Active Substance: ERGOCALCIFEROL
     Dosage: 1.25 MG, UNKNOWN
     Route: 065
  5. ACUPRIL [Concomitant]
     Dosage: 40 MG, QD
  6. AVENTYL [Concomitant]
     Dosage: UNK, UNKNOWN
     Route: 065
  7. LORAZEPAM. [Concomitant]
     Active Substance: LORAZEPAM
     Dosage: 1 MG, QD
     Route: 065
  8. ASACOL [Concomitant]
     Active Substance: MESALAMINE
     Dosage: 3600 MG, QD
     Route: 065
  9. VYTORIN [Concomitant]
     Active Substance: EZETIMIBE\SIMVASTATIN
     Dosage: 20 MG, QD
     Route: 065
  10. EVISTA [Suspect]
     Active Substance: RALOXIFENE HYDROCHLORIDE
     Indication: OSTEOPENIA
     Dosage: 60 MG, DAILY (1/D)
     Route: 065
  11. CALTRATE /00108001/ [Concomitant]
     Dosage: UNK, UNKNOWN
     Route: 065
  12. BENTYL [Concomitant]
     Active Substance: DICYCLOMINE HYDROCHLORIDE
     Dosage: 20 MG, TID
     Route: 065
  13. EVISTA [Suspect]
     Active Substance: RALOXIFENE HYDROCHLORIDE
     Indication: OSTEOARTHRITIS
  14. ACUPRIL [Concomitant]
     Indication: HYPERTENSION
     Dosage: 20 MG, QD
     Route: 065
  15. NORVASC [Concomitant]
     Active Substance: AMLODIPINE BESYLATE
     Indication: HYPERTENSION
     Dosage: 5 MG, UNKNOWN
     Route: 065
  16. RECLAST [Concomitant]
     Active Substance: ZOLEDRONIC ACID
     Indication: OSTEOPENIA
     Dosage: UNK
     Dates: start: 201107

REACTIONS (32)
  - Contrast media allergy [Unknown]
  - Fall [Unknown]
  - Decreased appetite [Unknown]
  - Memory impairment [Unknown]
  - Nephrolithiasis [Recovered/Resolved]
  - Breast calcifications [Unknown]
  - Fatigue [Unknown]
  - Pain in extremity [Unknown]
  - Impaired healing [Unknown]
  - Polyp [Unknown]
  - Accident [Unknown]
  - Osteoporosis [Unknown]
  - Arthralgia [Unknown]
  - Breast mass [Unknown]
  - Coronary artery occlusion [Unknown]
  - Contusion [Unknown]
  - Arthritis [Unknown]
  - Breast pain [Unknown]
  - Back pain [Unknown]
  - Blood cholesterol increased [Recovered/Resolved]
  - Ovarian disorder [Unknown]
  - Hypertension [Unknown]
  - Type 2 diabetes mellitus [Unknown]
  - Blood calcium abnormal [Unknown]
  - Blood glucose increased [Unknown]
  - Sleep disorder [Unknown]
  - Uterine leiomyoma [Unknown]
  - Colitis ulcerative [Unknown]
  - Macular degeneration [Unknown]
  - Malaise [Unknown]
  - Bacterial infection [Unknown]
  - Drug ineffective [Unknown]

NARRATIVE: CASE EVENT DATE: 2000
